FAERS Safety Report 13391031 (Version 1)
Quarter: 2017Q1

REPORT INFORMATION
  Report Type: Spontaneous
  Country: US (occurrence: US)
  Receive Date: 20170331
  Receipt Date: 20170331
  Transmission Date: 20170429
  Serious: Yes (Life-Threatening, Hospitalization, Disabling, Other)
  Sender: FDA-Public Use
  Company Number: None

PATIENT
  Sex: Female

DRUGS (1)
  1. GABAPENTIN. [Suspect]
     Active Substance: GABAPENTIN
     Indication: ANXIETY
     Route: 048
     Dates: start: 20170111

REACTIONS (11)
  - Vomiting [None]
  - Hypersomnia [None]
  - Lymphadenopathy [None]
  - Diarrhoea [None]
  - Cough [None]
  - Headache [None]
  - Anxiety [None]
  - Depression [None]
  - Feeling abnormal [None]
  - Hyperhidrosis [None]
  - Weight decreased [None]

NARRATIVE: CASE EVENT DATE: 20170125
